FAERS Safety Report 9448552 (Version 1)
Quarter: 2013Q3

REPORT INFORMATION
  Report Type: Spontaneous
  Country: US (occurrence: US)
  Receive Date: 20130808
  Receipt Date: 20130808
  Transmission Date: 20140515
  Serious: No
  Sender: FDA-Public Use
  Company Number: US-009507513-1308USA003756

PATIENT
  Age: 18 Month
  Sex: Female

DRUGS (1)
  1. COPPERTONE [Suspect]
     Indication: PROPHYLAXIS
     Dosage: UNK, ONCE
     Route: 061
     Dates: start: 20130628

REACTIONS (2)
  - Erythema [Not Recovered/Not Resolved]
  - Swelling face [Not Recovered/Not Resolved]
